FAERS Safety Report 9706526 (Version 2)
Quarter: 2014Q2

REPORT INFORMATION
  Report Type: Spontaneous
  Country: US (occurrence: US)
  Receive Date: 20131125
  Receipt Date: 20140414
  Transmission Date: 20141212
  Serious: Yes (Congenital Anomaly)
  Sender: FDA-Public Use
  Company Number: US-JNJFOC-20131111629

PATIENT
  Sex: Male

DRUGS (28)
  1. TOPAMAX [Suspect]
     Indication: MIGRAINE
     Route: 064
     Dates: start: 20020502, end: 20021010
  2. TOPAMAX [Suspect]
     Indication: MIGRAINE
     Dosage: MATERNAL DOSING
     Route: 064
     Dates: start: 20020104, end: 20020322
  3. TOPAMAX [Suspect]
     Indication: HEADACHE
     Route: 064
     Dates: start: 20020502, end: 20021010
  4. TOPAMAX [Suspect]
     Indication: HEADACHE
     Dosage: MATERNAL DOSING
     Route: 064
     Dates: start: 20020104, end: 20020322
  5. TOPAMAX [Suspect]
     Indication: ANXIETY
     Route: 064
     Dates: start: 20020502, end: 20021010
  6. TOPAMAX [Suspect]
     Indication: ANXIETY
     Dosage: MATERNAL DOSING
     Route: 064
     Dates: start: 20020104, end: 20020322
  7. TOPAMAX [Suspect]
     Indication: DEPRESSION
     Route: 064
     Dates: start: 20020502, end: 20021010
  8. TOPAMAX [Suspect]
     Indication: DEPRESSION
     Dosage: MATERNAL DOSING
     Route: 064
     Dates: start: 20020104, end: 20020322
  9. MAXALT [Suspect]
     Indication: MIGRAINE
     Route: 064
  10. ZOLOFT [Suspect]
     Indication: ANXIETY
     Route: 064
  11. ZOLOFT [Suspect]
     Indication: DEPRESSION
     Route: 064
  12. DOXEPIN [Suspect]
     Indication: PRODUCT USED FOR UNKNOWN INDICATION
     Route: 064
  13. MECLIZINE [Suspect]
     Indication: PRODUCT USED FOR UNKNOWN INDICATION
     Route: 064
  14. HYDROXYZINE PAMOATE [Suspect]
     Indication: PRODUCT USED FOR UNKNOWN INDICATION
     Route: 064
  15. ZITHROMAX [Suspect]
     Indication: PRODUCT USED FOR UNKNOWN INDICATION
     Route: 064
  16. ZYRTEC [Suspect]
     Route: 064
  17. ZYRTEC [Suspect]
     Indication: PRODUCT USED FOR UNKNOWN INDICATION
     Route: 064
  18. SULFAMETHOXAZOLE/TRIMETHOPRIM [Suspect]
     Indication: PRODUCT USED FOR UNKNOWN INDICATION
     Route: 064
  19. AMITRIPTYLINE HCL [Suspect]
     Indication: PRODUCT USED FOR UNKNOWN INDICATION
     Route: 064
  20. PRIMACARE [Suspect]
     Indication: PRODUCT USED FOR UNKNOWN INDICATION
     Route: 064
  21. ERY-TAB [Suspect]
     Indication: PRODUCT USED FOR UNKNOWN INDICATION
     Route: 064
  22. AMOXICILLIN [Suspect]
     Indication: FURUNCLE
     Route: 064
  23. SPIRONOLACTONE [Suspect]
     Indication: PRODUCT USED FOR UNKNOWN INDICATION
     Route: 064
  24. IBUPROFEN [Suspect]
     Indication: PRODUCT USED FOR UNKNOWN INDICATION
     Route: 064
  25. PHENAZOPYRIDINE [Suspect]
     Indication: PRODUCT USED FOR UNKNOWN INDICATION
     Route: 064
  26. FERROUS SULFATE [Concomitant]
     Indication: PRODUCT USED FOR UNKNOWN INDICATION
     Route: 064
  27. IRON [Concomitant]
     Indication: PRODUCT USED FOR UNKNOWN INDICATION
     Route: 064
  28. PRENATAL VITAMINS [Concomitant]
     Indication: PRODUCT USED FOR UNKNOWN INDICATION
     Route: 064

REACTIONS (9)
  - Cleft lip [Unknown]
  - Attention deficit/hyperactivity disorder [Unknown]
  - Cleft palate [Unknown]
  - Foetal exposure during pregnancy [Recovered/Resolved]
  - Cardiac valve disease [Unknown]
  - Eustachian tube dysfunction [Unknown]
  - Ear disorder [Unknown]
  - Emotional disorder [Unknown]
  - Cardiac murmur [Unknown]
